FAERS Safety Report 22142086 (Version 2)
Quarter: 2023Q1

REPORT INFORMATION
  Report Type: Report from Study
  Country: CH (occurrence: CH)
  Receive Date: 20230327
  Receipt Date: 20230331
  Transmission Date: 20230418
  Serious: Yes (Death, Other)
  Sender: FDA-Public Use
  Company Number: CH-002147023-NVSC2023CH070079

PATIENT
  Age: 6 Year
  Sex: Male
  Weight: 16.1 kg

DRUGS (3)
  1. TRAMETINIB [Suspect]
     Active Substance: TRAMETINIB
     Indication: Glioma
     Dosage: UNK
     Route: 048
     Dates: start: 20221031, end: 20221210
  2. NIVOLUMAB [Concomitant]
     Active Substance: NIVOLUMAB
     Indication: Glioma
     Dosage: 100 MG
     Route: 065
     Dates: start: 20220811, end: 20221207
  3. NIVOLUMAB [Concomitant]
     Active Substance: NIVOLUMAB
     Indication: Medulloblastoma

REACTIONS (5)
  - Death [Fatal]
  - Glioma [Unknown]
  - Malignant neoplasm progression [Unknown]
  - Skin disorder [Recovered/Resolved]
  - Infection [Recovered/Resolved]

NARRATIVE: CASE EVENT DATE: 20221207
